FAERS Safety Report 5453611-9 (Version None)
Quarter: 2007Q3

REPORT INFORMATION
  Report Type: 
  Country: None (occurrence: None)
  Receive Date: 20070917
  Receipt Date: 20070905
  Transmission Date: 20080115
  Serious: Yes (Hospitalization)
  Sender: FDA-Public Use
  Company Number: PHHO2007US14887

PATIENT
  Age: 61 Year
  Sex: Male

DRUGS (3)
  1. RAD001 VS PLACEBO [Suspect]
     Indication: CARCINOID TUMOUR
     Dosage: 10 MG, QD
     Route: 048
     Dates: start: 20070625, end: 20070827
  2. RAD001 VS PLACEBO [Suspect]
     Dosage: NO TREATMENT
     Route: 048
     Dates: start: 20070828
  3. SANDOSTATIN LAR [Suspect]
     Indication: CARCINOID TUMOUR

REACTIONS (7)
  - ABDOMINAL PAIN [None]
  - ASTHENIA [None]
  - DIARRHOEA [None]
  - GASTROINTESTINAL HAEMORRHAGE [None]
  - NAUSEA [None]
  - OCCULT BLOOD POSITIVE [None]
  - VOMITING [None]
